FAERS Safety Report 8795432 (Version 1)
Quarter: 2012Q4

REPORT INFORMATION
  Report Type: 
  Country: FR (occurrence: FR)
  Receive Date: 20120917
  Receipt Date: 20120917
  Transmission Date: 20130627
  Serious: Yes (Hospitalization)
  Sender: FDA-Public Use
  Company Number: FR-ROCHE-1127159

PATIENT
  Age: 74 Year
  Sex: Male
  Weight: 80 kg

DRUGS (6)
  1. MABTHERA [Suspect]
     Indication: CONGENITAL SYPHILITIC OSTEOCHONDRITIS
     Route: 042
     Dates: start: 20120718, end: 20120801
  2. MABTHERA [Suspect]
     Route: 065
     Dates: start: 20120801
  3. CORTANCYL [Concomitant]
     Route: 065
  4. CITALOPRAM [Concomitant]
     Route: 065
  5. KARDEGIC [Concomitant]
     Route: 065
  6. PARIET [Concomitant]
     Route: 065

REACTIONS (2)
  - Pyrexia [Recovered/Resolved]
  - Acute febrile neutrophilic dermatosis [Recovering/Resolving]
